FAERS Safety Report 6303155-7 (Version None)
Quarter: 2009Q3

REPORT INFORMATION
  Report Type: 
  Country: None (occurrence: None)
  Receive Date: 20090810
  Receipt Date: 20090205
  Transmission Date: 20100115
  Serious: No
  Sender: FDA-Public Use
  Company Number: A0767136A

PATIENT
  Age: 45 Year
  Sex: Male

DRUGS (2)
  1. PAXIL CR [Suspect]
     Dosage: 25MG PER DAY
     Route: 048
     Dates: start: 20070701, end: 20090101
  2. LIPITOR [Concomitant]

REACTIONS (1)
  - HEADACHE [None]
